FAERS Safety Report 24186484 (Version 2)
Quarter: 2024Q3

REPORT INFORMATION
  Report Type: Spontaneous
  Country: FR (occurrence: FR)
  Receive Date: 20240808
  Receipt Date: 20240813
  Transmission Date: 20241017
  Serious: Yes (Other)
  Sender: LEO PHARM
  Company Number: None

PATIENT
  Age: 40 Year
  Sex: Female
  Weight: 54 kg

DRUGS (3)
  1. PROTOPIC [Suspect]
     Active Substance: TACROLIMUS
     Indication: Seborrhoeic dermatitis
     Dosage: 0,1 %?1 DOSAGE FORM
     Route: 003
     Dates: start: 20240215, end: 20240725
  2. PROTOPIC [Suspect]
     Active Substance: TACROLIMUS
     Indication: Seborrhoeic dermatitis
     Dosage: 0,1 %?1 DOSAGE FORM
     Route: 003
     Dates: start: 20240215, end: 20240725
  3. CLOBETASOL PROPIONATE [Concomitant]
     Active Substance: CLOBETASOL PROPIONATE
     Indication: Product used for unknown indication
     Dosage: 500 MCG/G

REACTIONS (2)
  - Herpes ophthalmic [Recovered/Resolved]
  - Off label use [Unknown]

NARRATIVE: CASE EVENT DATE: 20240215
